FAERS Safety Report 7642850-4 (Version None)
Quarter: 2011Q3

REPORT INFORMATION
  Report Type: 
  Country: None (occurrence: None)
  Receive Date: 20110728
  Receipt Date: 20110726
  Transmission Date: 20111222
  Serious: Yes (Other)
  Sender: FDA-Public Use
  Company Number: US-CEPHALON-2011003067

PATIENT
  Sex: Male
  Weight: 73 kg

DRUGS (2)
  1. NUVIGIL [Suspect]
     Route: 048
     Dates: start: 20110626, end: 20110627
  2. XANAX [Concomitant]
     Indication: ANXIETY
     Route: 048
     Dates: start: 20080101

REACTIONS (1)
  - RASH MACULO-PAPULAR [None]
